FAERS Safety Report 8949640 (Version 2)
Quarter: 2012Q4

REPORT INFORMATION
  Report Type: 
  Country: US (occurrence: US)
  Receive Date: 20121206
  Receipt Date: 20121214
  Transmission Date: 20130627
  Serious: Yes (Other)
  Sender: FDA-Public Use
  Company Number: US-BAYER-2012-127127

PATIENT
  Age: 70 Year
  Sex: Female

DRUGS (3)
  1. STIVARGA [Suspect]
     Indication: METASTATIC COLON CANCER
     Dosage: 160 mg, QD
     Route: 048
     Dates: start: 20121127, end: 20121128
  2. STIVARGA [Suspect]
     Indication: METASTATIC COLON CANCER
     Dosage: 40 mg, QOD
     Dates: start: 20121206
  3. MEDICATION FOR MIGRAINE HEADACHES [Concomitant]
     Indication: MIGRAINE HEADACHE

REACTIONS (6)
  - Migraine [Recovering/Resolving]
  - Hypertension [Recovering/Resolving]
  - Stomatitis [Not Recovered/Not Resolved]
  - Fatigue [Not Recovered/Not Resolved]
  - Abdominal pain [Not Recovered/Not Resolved]
  - Headache [None]
